FAERS Safety Report 11047896 (Version 1)
Quarter: 2015Q2

REPORT INFORMATION
  Report Type: Spontaneous
  Country: US (occurrence: US)
  Receive Date: 20150420
  Receipt Date: 20150420
  Transmission Date: 20150821
  Serious: No
  Sender: FDA-Public Use
  Company Number: US-PFIZER INC-2015128048

PATIENT
  Sex: Female

DRUGS (1)
  1. NEURONTIN [Suspect]
     Active Substance: GABAPENTIN
     Indication: SCIATICA
     Dosage: UNK

REACTIONS (3)
  - Drug effect incomplete [Unknown]
  - Condition aggravated [Unknown]
  - Depressed mood [Unknown]
